FAERS Safety Report 10585489 (Version 1)
Quarter: 2014Q4

REPORT INFORMATION
  Report Type: Spontaneous
  Country: IN (occurrence: None)
  Receive Date: 20141113
  Receipt Date: 20141113
  Transmission Date: 20150529
  Serious: Yes (Hospitalization)
  Sender: FDA-Public Use
  Company Number: IMP_08114_2014

PATIENT
  Age: 10 Year
  Sex: Male

DRUGS (1)
  1. DIVALPROEX SODIUM. [Suspect]
     Active Substance: DIVALPROEX SODIUM
     Indication: LENNOX-GASTAUT SYNDROME

REACTIONS (4)
  - Toxicity to various agents [None]
  - Vomiting [None]
  - Cerebellar atrophy [None]
  - Hyperammonaemic encephalopathy [None]
